FAERS Safety Report 14348762 (Version 2)
Quarter: 2018Q1

REPORT INFORMATION
  Report Type: Spontaneous
  Country: US (occurrence: US)
  Receive Date: 20180104
  Receipt Date: 20180108
  Transmission Date: 20180509
  Serious: Yes (Death)
  Sender: FDA-Public Use
  Company Number: US-ROCHE-2049703

PATIENT
  Age: 24 Year
  Sex: Female

DRUGS (1)
  1. ZELBORAF [Suspect]
     Active Substance: VEMURAFENIB
     Indication: PRODUCT USED FOR UNKNOWN INDICATION
     Dosage: 240 MG, 3 TABLETS TWICE DAILY
     Route: 048
     Dates: start: 20161013, end: 20171205

REACTIONS (1)
  - Death [Fatal]

NARRATIVE: CASE EVENT DATE: 20171219
